FAERS Safety Report 5460924-3 (Version None)
Quarter: 2007Q3

REPORT INFORMATION
  Report Type: 
  Country: None (occurrence: None)
  Receive Date: 20070810
  Receipt Date: 20061115
  Transmission Date: 20080115
  Serious: Yes (Other)
  Sender: FDA-Public Use
  Company Number: 200616183BWH

PATIENT

DRUGS (2)
  1. TRASYLOL [Suspect]
     Indication: DRUG USE FOR UNKNOWN INDICATION
     Dosage: 1 MG, ONCE, INTRAVENOUS
     Route: 042
     Dates: start: 20061021
  2. VANCOMYCIN [Concomitant]

REACTIONS (5)
  - ERYTHEMA [None]
  - JUGULAR VEIN THROMBOSIS [None]
  - PHLEBITIS [None]
  - THROMBOPHLEBITIS [None]
  - THROMBOSIS [None]
